FAERS Safety Report 7347718-9 (Version None)
Quarter: 2011Q1

REPORT INFORMATION
  Report Type: 
  Country: None (occurrence: None)
  Receive Date: 20110311
  Receipt Date: 20110304
  Transmission Date: 20110831
  Serious: Yes (Life-Threatening, Hospitalization)
  Sender: FDA-Public Use
  Company Number: B0704661A

PATIENT
  Sex: Male
  Weight: 67 kg

DRUGS (21)
  1. MAGLAX [Concomitant]
     Dosage: 990MG PER DAY
     Route: 048
     Dates: start: 20081017, end: 20081211
  2. BAKTAR [Concomitant]
     Dosage: 1IUAX PER DAY
     Route: 048
     Dates: start: 20081023, end: 20081023
  3. ZOVIRAX [Concomitant]
     Dosage: 1000MG PER DAY
     Route: 048
     Dates: start: 20081023, end: 20090111
  4. MEYLON [Concomitant]
     Dosage: 80ML PER DAY
     Route: 042
     Dates: start: 20081027, end: 20081028
  5. FLUDARA [Concomitant]
     Indication: CORD BLOOD TRANSPLANT THERAPY
     Dosage: 25MGM2 PER DAY
     Route: 042
     Dates: start: 20081023, end: 20081027
  6. URSO 250 [Concomitant]
     Dosage: 600MG PER DAY
     Route: 048
     Dates: start: 20081023, end: 20081104
  7. SELOKEN [Concomitant]
     Dosage: 40MG PER DAY
     Route: 048
     Dates: start: 20081017, end: 20090212
  8. DIFLUCAN [Concomitant]
     Dosage: 200MG PER DAY
     Route: 048
     Dates: start: 20081023, end: 20081204
  9. BIOFERMIN R [Concomitant]
     Dosage: 3IUAX PER DAY
     Route: 048
     Dates: start: 20081023, end: 20081104
  10. FUNGIZONE [Concomitant]
     Dosage: 60ML PER DAY
     Route: 002
     Dates: start: 20081023, end: 20081218
  11. LENDORMIN [Concomitant]
     Dosage: .25MG PER DAY
     Route: 048
     Dates: start: 20081025, end: 20081103
  12. FUROSEMIDE [Concomitant]
     Dosage: 2ML PER DAY
     Route: 042
     Dates: start: 20081029, end: 20081110
  13. CICLOSPORIN [Concomitant]
     Indication: IMMUNOSUPPRESSION
     Dosage: 200MG PER DAY
     Route: 065
     Dates: start: 20081029, end: 20081209
  14. ISODINE GARGLE [Concomitant]
     Dosage: 1ML PER DAY
     Route: 002
     Dates: start: 20081023, end: 20081213
  15. KYTRIL [Concomitant]
     Dosage: 3ML PER DAY
     Route: 042
     Dates: start: 20081023, end: 20081028
  16. GLOVENIN [Concomitant]
     Dosage: 5000MG PER DAY
     Route: 042
     Dates: start: 20081023, end: 20081127
  17. ALKERAN [Suspect]
     Indication: CORD BLOOD TRANSPLANT THERAPY
     Dosage: 80MGM2 PER DAY
     Route: 042
     Dates: start: 20081028, end: 20081028
  18. METHOTREXATE [Concomitant]
     Indication: IMMUNOSUPPRESSION
     Dosage: 18MG PER DAY
     Route: 065
     Dates: start: 20081031, end: 20081105
  19. BLOPRESS [Concomitant]
     Dosage: 8MG PER DAY
     Route: 048
     Dates: start: 20081017, end: 20090212
  20. AMLODIPINE [Concomitant]
     Dosage: 5MG PER DAY
     Route: 048
     Dates: start: 20081017, end: 20090212
  21. CRAVIT [Concomitant]
     Dosage: 300MG PER DAY
     Route: 048
     Dates: start: 20081023, end: 20081104

REACTIONS (4)
  - SEPSIS [None]
  - BLOOD BILIRUBIN INCREASED [None]
  - BLOOD ALKALINE PHOSPHATASE INCREASED [None]
  - GAMMA-GLUTAMYLTRANSFERASE INCREASED [None]
